FAERS Safety Report 19076069 (Version 1)
Quarter: 2021Q1

REPORT INFORMATION
  Report Type: Report from Study
  Country: US (occurrence: US)
  Receive Date: 20210330
  Receipt Date: 20210330
  Transmission Date: 20210420
  Serious: Yes (Hospitalization)
  Sender: FDA-Public Use
  Company Number: US-BAXTER-2021BAX005710

PATIENT
  Age: 66 Year
  Sex: Female

DRUGS (14)
  1. VINCRISTINE SULFATE. [Suspect]
     Active Substance: VINCRISTINE SULFATE
     Indication: PRODUCT USED FOR UNKNOWN INDICATION
     Dosage: DAY 1 AND DAY 8 (APPROXIMATE), REGIMEN A
     Route: 042
  2. RITUXIMAB. [Suspect]
     Active Substance: RITUXIMAB
     Indication: PRODUCT USED FOR UNKNOWN INDICATION
     Dosage: ON DAY 2 AND DAY 8 OF CYCLES 1 AND 3, REGIMEN A
     Route: 042
  3. INOTUZUMAB OZOGAMICIN [Suspect]
     Active Substance: INOTUZUMAB OZOGAMICIN
     Dosage: LAST DOSE PRIOR TO EVENT
     Route: 042
     Dates: start: 20210205, end: 20210205
  4. METHOTREXATE SODIUM. [Suspect]
     Active Substance: METHOTREXATE SODIUM
     Indication: PRODUCT USED FOR UNKNOWN INDICATION
     Dosage: OVER 2HRS ON DAY 1, REGIMEN B
     Route: 042
  5. INOTUZUMAB OZOGAMICIN [Suspect]
     Active Substance: INOTUZUMAB OZOGAMICIN
     Dosage: CMC?544, ON DAYS 2 AND 8 OF CYCLES 2 AND 4, REGIMEN B
     Route: 042
  6. RITUXIMAB. [Suspect]
     Active Substance: RITUXIMAB
     Dosage: ON DAY 2 AND 8 OF CYCLES 2 AND 4, REGIMEN B
     Route: 042
  7. PEGFILGRASTIM [Suspect]
     Active Substance: PEGFILGRASTIM
     Dosage: SUB Q (OR FILGRASTIM 5?10 MCG/KG DAILY) ON DAY 4 UNTIL RECOVERY OF GRANULOCYTE COUNT, REGIMEN B
     Route: 058
  8. PEGFILGRASTIM [Suspect]
     Active Substance: PEGFILGRASTIM
     Indication: PRODUCT USED FOR UNKNOWN INDICATION
     Dosage: SUBQ (OR FILGRASTIM 5?10 MCG/KG DAILY) ON DAY 4 UNTIL RECOVERY OF GRANULOCYTE COUNT, REGIMEN A
     Route: 058
  9. DEXAMETHASONE. [Suspect]
     Active Substance: DEXAMETHASONE
     Indication: PRODUCT USED FOR UNKNOWN INDICATION
     Dosage: DAILY FOR 4 DAYS ON DAYS 1?4 AND DAYS 11?14 REGIMEN A
     Route: 042
  10. METHOTREXATE SODIUM. [Suspect]
     Active Substance: METHOTREXATE SODIUM
     Dosage: CONTINUOUS INFUSION OVER 22 HOURS ON DAY 1, REGIMEN B
     Route: 042
  11. CYCLOPHOSPHAMIDE FOR INJECTION, USP [Suspect]
     Active Substance: CYCLOPHOSPHAMIDE
     Indication: PRODUCT USED FOR UNKNOWN INDICATION
     Dosage: OVER 3 HOURS TWICE A DAY ON DAYS 1?3, REGIMEN A
     Route: 042
  12. MESNEX [Suspect]
     Active Substance: MESNA
     Indication: PRODUCT USED FOR UNKNOWN INDICATION
     Dosage: DAILY OVER 24 HOURS FOR 3 DAYS ON DAYS 1?3, REGIMEN A
     Route: 042
  13. INOTUZUMAB OZOGAMICIN [Suspect]
     Active Substance: INOTUZUMAB OZOGAMICIN
     Indication: ACUTE LYMPHOCYTIC LEUKAEMIA
     Dosage: CMC?544, OVER 1 HOUR ON DAYS 2 AND 8 OF CYCLES 1 AND 3, REGIMEN A
     Route: 042
     Dates: start: 20210103
  14. ARA?C [Suspect]
     Active Substance: CYTARABINE
     Indication: PRODUCT USED FOR UNKNOWN INDICATION
     Dosage: OVER 3 HOURS TWICE A DAY X 4 DOSES ON DAYS 2 AND 3, REGIMEN B
     Route: 042

REACTIONS (1)
  - Febrile neutropenia [Recovered/Resolved]

NARRATIVE: CASE EVENT DATE: 20210211
